FAERS Safety Report 6709136-3 (Version None)
Quarter: 2010Q2

REPORT INFORMATION
  Report Type: 
  Country: None (occurrence: None)
  Receive Date: 20100429
  Receipt Date: 20100422
  Transmission Date: 20101027
  Serious: Yes (Hospitalization)
  Sender: FDA-Public Use
  Company Number: 009303

PATIENT
  Age: 93 Year
  Sex: Female

DRUGS (3)
  1. PLETAL [Suspect]
     Dosage: 100 MG, BID ORAL
     Route: 048
     Dates: start: 20100415, end: 20100419
  2. CEFAZOLIN SODIUM (CEFAZOLIN SODIUM) INJECTION [Concomitant]
  3. CEFZON (CEFDINIR) CAPSULE [Concomitant]

REACTIONS (2)
  - ANAEMIA [None]
  - RENAL FAILURE [None]
